FAERS Safety Report 6966098-1 (Version None)
Quarter: 2010Q3

REPORT INFORMATION
  Report Type: 
  Country: None (occurrence: None)
  Receive Date: 20100903
  Receipt Date: 20100823
  Transmission Date: 20110219
  Serious: Yes (Hospitalization)
  Sender: FDA-Public Use
  Company Number: PHFR2010GB02458

PATIENT
  Sex: Male

DRUGS (3)
  1. CLOZARIL [Suspect]
     Indication: SCHIZOPHRENIA
     Dosage: UNK
     Route: 048
     Dates: start: 20020518
  2. CLOZARIL [Suspect]
     Dosage: 500MG OD
     Route: 048
  3. ACETAMINOPHEN [Suspect]
     Dosage: 60-70 TABLETS

REACTIONS (5)
  - ALANINE AMINOTRANSFERASE INCREASED [None]
  - DEPRESSED MOOD [None]
  - MENTAL DISORDER [None]
  - OVERDOSE [None]
  - SEXUAL DYSFUNCTION [None]
